FAERS Safety Report 18437607 (Version 2)
Quarter: 2021Q1

REPORT INFORMATION
  Report Type: Spontaneous
  Country: ES (occurrence: ES)
  Receive Date: 20201028
  Receipt Date: 20210304
  Transmission Date: 20210419
  Serious: Yes (Disabling, Other)
  Sender: FDA-Public Use
  Company Number: ES-TAKEDA-2020TUS044056

PATIENT
  Age: 63 Year
  Sex: Female
  Weight: 69 kg

DRUGS (5)
  1. VELCADE [Suspect]
     Active Substance: BORTEZOMIB
     Indication: WALDENSTROM^S MACROGLOBULINAEMIA
     Dosage: 1.6 MILLIGRAM/SQ. METER
     Route: 042
     Dates: start: 20160419
  2. DEXAMETHASONE. [Suspect]
     Active Substance: DEXAMETHASONE
     Indication: WALDENSTROM^S MACROGLOBULINAEMIA
     Dosage: 40 MILLIGRAM
     Route: 048
     Dates: start: 20160419, end: 20160809
  3. RITUXIMAB. [Suspect]
     Active Substance: RITUXIMAB
     Indication: WALDENSTROM^S MACROGLOBULINAEMIA
     Dosage: 375 MILLIGRAM/SQ. METER
     Route: 042
     Dates: start: 20160419, end: 20160512
  4. VELCADE [Suspect]
     Active Substance: BORTEZOMIB
     Dosage: 1.6 MILLIGRAM/SQ. METER
     Route: 042
     Dates: start: 20160523
  5. VELCADE [Suspect]
     Active Substance: BORTEZOMIB
     Dosage: 1.6 MILLIGRAM/SQ. METER
     Route: 042
     Dates: start: 20160719

REACTIONS (5)
  - Peripheral sensory neuropathy [Recovered/Resolved with Sequelae]
  - Haemorrhagic diathesis [Recovered/Resolved]
  - Diarrhoea [Recovered/Resolved with Sequelae]
  - Off label use [Unknown]
  - Product use in unapproved indication [Unknown]

NARRATIVE: CASE EVENT DATE: 20160512
